FAERS Safety Report 7097344-4 (Version None)
Quarter: 2010Q4

REPORT INFORMATION
  Report Type: 
  Country: None (occurrence: None)
  Receive Date: 20101111
  Receipt Date: 20101109
  Transmission Date: 20110411
  Serious: Yes (Other)
  Sender: FDA-Public Use
  Company Number: JP-PFIZER INC-2010144130

PATIENT
  Age: 77 Year
  Sex: Male
  Weight: 50 kg

DRUGS (1)
  1. LYRICA [Suspect]
     Indication: POST HERPETIC NEURALGIA
     Dosage: 75 MG, UNK
     Route: 048

REACTIONS (3)
  - CREATININE RENAL CLEARANCE DECREASED [None]
  - OEDEMA [None]
  - WEIGHT INCREASED [None]
